FAERS Safety Report 13295583 (Version 1)
Quarter: 2017Q1

REPORT INFORMATION
  Report Type: Report from Study
  Country: None (occurrence: CA)
  Receive Date: 20170303
  Receipt Date: 20170303
  Transmission Date: 20170428
  Serious: Yes (Other)
  Sender: FDA-Public Use
  Company Number: CA-ABBVIE-17P-028-1892046-00

PATIENT
  Age: 59 Year
  Sex: Male

DRUGS (1)
  1. HUMIRA [Suspect]
     Active Substance: ADALIMUMAB
     Indication: CROHN^S DISEASE
     Route: 058
     Dates: start: 20140314

REACTIONS (11)
  - Defaecation urgency [Not Recovered/Not Resolved]
  - Drug ineffective [Not Recovered/Not Resolved]
  - Arthropod bite [Recovered/Resolved]
  - Glossitis [Unknown]
  - Local swelling [Unknown]
  - Fatigue [Not Recovered/Not Resolved]
  - Abdominal pain [Unknown]
  - Hypersensitivity [Unknown]
  - Swollen tongue [Unknown]
  - Crohn^s disease [Unknown]
  - Salivary gland neoplasm [Not Recovered/Not Resolved]

NARRATIVE: CASE EVENT DATE: 201612
